FAERS Safety Report 5385943-7 (Version None)
Quarter: 2007Q3

REPORT INFORMATION
  Report Type: 
  Country: None (occurrence: None)
  Receive Date: 20070710
  Receipt Date: 20070629
  Transmission Date: 20080115
  Serious: Yes (Death, Other)
  Sender: FDA-Public Use
  Company Number: 2007-02245

PATIENT
  Age: 11 Year
  Sex: Male
  Weight: 31 kg

DRUGS (1)
  1. VELCADE [Suspect]
     Indication: NON-RENAL CELL CARCINOMA OF KIDNEY
     Dosage: 1.20 MG/M2, INTRAVENOUS
     Route: 042
     Dates: start: 20070504, end: 20070626

REACTIONS (3)
  - LUNG CANCER METASTATIC [None]
  - MALIGNANT NEOPLASM PROGRESSION [None]
  - OFF LABEL USE [None]
